FAERS Safety Report 24969821 (Version 1)
Quarter: 2025Q1

REPORT INFORMATION
  Report Type: Spontaneous
  Country: JP (occurrence: JP)
  Receive Date: 20250214
  Receipt Date: 20250214
  Transmission Date: 20250409
  Serious: Yes (Other)
  Sender: ARGENX BVBA
  Company Number: JP-ARGENX-2025-ARGX-JP001577

PATIENT

DRUGS (2)
  1. EFGARTIGIMOD ALFA\HYALURONIDASE-QVFC [Suspect]
     Active Substance: EFGARTIGIMOD ALFA\HYALURONIDASE-QVFC
     Indication: Myasthenia gravis
     Route: 058
     Dates: start: 20241101, end: 20241122
  2. TACROLIMUS [Concomitant]
     Active Substance: TACROLIMUS
     Indication: Product used for unknown indication
     Route: 065

REACTIONS (1)
  - Myasthenia gravis crisis [Recovering/Resolving]

NARRATIVE: CASE EVENT DATE: 20241209
